FAERS Safety Report 4422839-9 (Version None)
Quarter: 2004Q3

REPORT INFORMATION
  Report Type: 
  Country: None (occurrence: None)
  Receive Date: 20040806
  Receipt Date: 20040719
  Transmission Date: 20050211
  Serious: Yes (Hospitalization)
  Sender: FDA-Public Use
  Company Number: USA040772930

PATIENT
  Age: 82 Year
  Sex: Male

DRUGS (2)
  1. HUMALOG [Suspect]
     Dosage: 50 U DAY
  2. LANTUS [Concomitant]

REACTIONS (2)
  - COMA [None]
  - MEDICATION ERROR [None]
